FAERS Safety Report 5092396-5 (Version None)
Quarter: 2006Q3

REPORT INFORMATION
  Report Type: 
  Country: None (occurrence: None)
  Receive Date: 20060825
  Receipt Date: 20060816
  Transmission Date: 20061208
  Serious: Yes (Other)
  Sender: FDA-Public Use
  Company Number: CIP06001908

PATIENT
  Age: 42 Year
  Sex: Female

DRUGS (8)
  1. ACTONEL [Suspect]
     Dosage: 35 MG ONCE WEEKLY, ORAL
     Route: 048
     Dates: start: 20050101
  2. GLUCOPHAGE [Concomitant]
  3. ATENOLOL [Concomitant]
  4. ASTELIN [Concomitant]
  5. FLONASE (FLUTICASONE PRIOPIONATE) [Concomitant]
  6. HOMEOPATIC PREPARATION [Concomitant]
  7. ASCORBIC ACID [Concomitant]
  8. FISH OIL (FISH OIL) [Concomitant]

REACTIONS (1)
  - UTERINE CANCER [None]
